FAERS Safety Report 23788791 (Version 1)
Quarter: 2024Q2

REPORT INFORMATION
  Report Type: Spontaneous
  Country: US (occurrence: None)
  Receive Date: 20240425
  Receipt Date: 20240425
  Transmission Date: 20240715
  Serious: No
  Sender: FDA-Public Use
  Company Number: None

PATIENT
  Age: 63 Year
  Sex: Female

DRUGS (1)
  1. PROGESTERONE [Suspect]
     Active Substance: PROGESTERONE
     Dosage: FREQUENCY : DAILY;?
     Route: 048
     Dates: start: 20240423, end: 20240423

REACTIONS (2)
  - Rash [None]
  - Food allergy [None]

NARRATIVE: CASE EVENT DATE: 20240423
